FAERS Safety Report 19668738 (Version 2)
Quarter: 2021Q3

REPORT INFORMATION
  Report Type: Report from Study
  Country: CA (occurrence: CA)
  Receive Date: 20210806
  Receipt Date: 20210811
  Transmission Date: 20211014
  Serious: Yes (Death)
  Sender: FDA-Public Use
  Company Number: CA-PUMA BIOTECHNOLOGY, INC.-2021-PUM-CA003594

PATIENT

DRUGS (3)
  1. CAPECITABINE. [Concomitant]
     Active Substance: CAPECITABINE
     Indication: BREAST CANCER METASTATIC
     Dosage: UNK
  2. NERLYNX [Suspect]
     Active Substance: NERATINIB
     Indication: BREAST CANCER METASTATIC
     Dosage: 80 MG (2 TABLETS), DAILY
     Route: 048
     Dates: start: 20210527, end: 2021
  3. NERLYNX [Suspect]
     Active Substance: NERATINIB
     Indication: OFF LABEL USE

REACTIONS (3)
  - Metastatic neoplasm [Fatal]
  - Off label use [Unknown]
  - Vertigo positional [Recovered/Resolved]
